FAERS Safety Report 9904571 (Version 1)
Quarter: 2014Q1

REPORT INFORMATION
  Report Type: Spontaneous
  Country: US (occurrence: US)
  Receive Date: 20140218
  Receipt Date: 20140218
  Transmission Date: 20141002
  Serious: No
  Sender: FDA-Public Use
  Company Number: US-009507513-1402USA008138

PATIENT
  Age: 85 Year
  Sex: Female
  Weight: 39.91 kg

DRUGS (4)
  1. ZIOPTAN [Suspect]
     Indication: GLAUCOMA
     Dosage: ONE DROP PER EYE ONCE DAILY
     Route: 047
     Dates: start: 201210
  2. TRUSOPT [Suspect]
     Indication: GLAUCOMA
     Dosage: UNK
     Route: 047
     Dates: start: 201210
  3. TIMOPTIC [Suspect]
     Indication: GLAUCOMA
     Dosage: UNK
     Route: 047
     Dates: start: 201210
  4. PILOCARPINE [Concomitant]
     Dosage: UNK
     Dates: start: 201210

REACTIONS (2)
  - Eye pruritus [Not Recovered/Not Resolved]
  - Eye pain [Unknown]
